FAERS Safety Report 8282594-1 (Version None)
Quarter: 2012Q2

REPORT INFORMATION
  Report Type: 
  Country: None (occurrence: None)
  Receive Date: 20120413
  Receipt Date: 20120406
  Transmission Date: 20120825
  Serious: Yes (Hospitalization)
  Sender: FDA-Public Use
  Company Number: FR-SANOFI-AVENTIS-2012SA024246

PATIENT
  Age: 81 Year
  Sex: Female

DRUGS (10)
  1. COUMADIN [Concomitant]
     Indication: ATRIAL FIBRILLATION
  2. FENOFIBRATE [Concomitant]
  3. ALDALIX [Concomitant]
  4. OXAZEPAM [Suspect]
     Route: 065
  5. LASIX [Suspect]
     Indication: ARRHYTHMIA SUPRAVENTRICULAR
     Route: 065
  6. ATENOLOL [Suspect]
     Indication: ARRHYTHMIA SUPRAVENTRICULAR
     Route: 065
  7. SOTALOL HCL [Concomitant]
  8. DIGOXIN [Concomitant]
  9. CLONAZEPAM [Concomitant]
  10. ZOLOFT [Suspect]
     Route: 065

REACTIONS (1)
  - FALL [None]
